FAERS Safety Report 8757570 (Version 2)
Quarter: 2012Q4

REPORT INFORMATION
  Report Type: 
  Country: US (occurrence: US)
  Receive Date: 20120828
  Receipt Date: 20121001
  Transmission Date: 20130627
  Serious: Yes (Hospitalization, Other)
  Sender: FDA-Public Use
  Company Number: US-BAYER-2012-088000

PATIENT
  Age: 38 Year
  Sex: Female
  Weight: 53.97 kg

DRUGS (4)
  1. BETASERON [Suspect]
     Indication: MULTIPLE SCLEROSIS
     Dosage: 1 DF, QOD
     Dates: start: 20100126, end: 20120918
  2. CYMBALTA [Concomitant]
     Indication: DEPRESSION
     Dosage: 60 mg, QD
     Dates: start: 201001
  3. GABAPENTIN [Concomitant]
     Indication: DYSKINESIA
     Dosage: 300 mg, BID
  4. GABAPENTIN [Concomitant]
     Indication: PARAESTHESIA

REACTIONS (2)
  - Central nervous system lesion [Not Recovered/Not Resolved]
  - Hypoaesthesia [Not Recovered/Not Resolved]
